FAERS Safety Report 20229354 (Version 1)
Quarter: 2021Q4

REPORT INFORMATION
  Report Type: Spontaneous
  Country: GB (occurrence: GB)
  Receive Date: 20211225
  Receipt Date: 20211225
  Transmission Date: 20220303
  Serious: Yes (Hospitalization)
  Sender: FDA-Public Use
  Company Number: GB-NOVARTISPH-NVSC2020GB329389

PATIENT
  Age: 32 Year
  Sex: Male

DRUGS (1)
  1. TOBI PODHALER [Suspect]
     Active Substance: TOBRAMYCIN
     Indication: Cystic fibrosis
     Dosage: 224 MG, QD (112 MILLIGRAM BD ALT MTHS)
     Route: 065

REACTIONS (2)
  - General physical health deterioration [Unknown]
  - Product dose omission issue [Unknown]
